FAERS Safety Report 4861136-4 (Version None)
Quarter: 2005Q4

REPORT INFORMATION
  Report Type: 
  Country: None (occurrence: None)
  Receive Date: 20051216
  Receipt Date: 20051117
  Transmission Date: 20060501
  Serious: Yes (Hospitalization)
  Sender: FDA-Public Use
  Company Number: 219108

PATIENT
  Age: 75 Year
  Sex: Female

DRUGS (6)
  1. AVASTIN [Suspect]
     Indication: BREAST CANCER METASTATIC
     Dosage: 952 MG Q3W INTRAVENOUS
     Route: 042
     Dates: start: 20050929, end: 20050929
  2. CAPECITABINE (CAPECITABINE) [Suspect]
     Indication: BREAST CANCER METASTATIC
     Dosage: 1500 MG QD ORAL
     Route: 048
     Dates: start: 20050929
  3. TOPROL-XL [Concomitant]
  4. NEXIUM [Concomitant]
  5. MULTI-VITAMINS [Concomitant]
  6. LORAZEPAM [Concomitant]

REACTIONS (14)
  - ASTHENIA [None]
  - ATELECTASIS [None]
  - BACTERIA URINE IDENTIFIED [None]
  - BLOOD URINE [None]
  - CHILLS [None]
  - CONFUSIONAL STATE [None]
  - DIVERTICULITIS [None]
  - ENTEROVESICAL FISTULA [None]
  - HAEMATOCRIT DECREASED [None]
  - HAEMOGLOBIN DECREASED [None]
  - LUNG NEOPLASM [None]
  - MALAISE [None]
  - PYREXIA [None]
  - RECTAL HAEMORRHAGE [None]
